FAERS Safety Report 6138393-X (Version None)
Quarter: 2009Q1

REPORT INFORMATION
  Report Type: 
  Country: None (occurrence: None)
  Receive Date: 20090327
  Receipt Date: 20090323
  Transmission Date: 20090719
  Serious: Yes (Hospitalization)
  Sender: FDA-Public Use
  Company Number: 09US000360

PATIENT
  Age: 81 Year
  Sex: Female
  Weight: 63 kg

DRUGS (10)
  1. CALCIUM CARBONATE BERRY CHEWABLE 750 MG 489(CALCIUM CARBONATE) CHEWABL [Suspect]
     Indication: CALCIUM DEFICIENCY
     Dosage: 2 DF, QD, ORAL
     Route: 048
     Dates: start: 20090228, end: 20090307
  2. CALCIUM CARBONATE BERRY CHEWABLE 750 MG 489(CALCIUM CARBONATE) CHEWABL [Suspect]
     Indication: GASTROOESOPHAGEAL REFLUX DISEASE
     Dosage: 2 DF, QD, ORAL
     Route: 048
     Dates: start: 20090228, end: 20090307
  3. CALCIUM CARBONATE BERRY CHEWABLE 750 MG 489(CALCIUM CARBONATE) CHEWABL [Suspect]
     Indication: CALCIUM DEFICIENCY
     Dosage: 2 DF, QD, ORAL
     Route: 048
     Dates: start: 20090309, end: 20090321
  4. CALCIUM CARBONATE BERRY CHEWABLE 750 MG 489(CALCIUM CARBONATE) CHEWABL [Suspect]
     Indication: GASTROOESOPHAGEAL REFLUX DISEASE
     Dosage: 2 DF, QD, ORAL
     Route: 048
     Dates: start: 20090309, end: 20090321
  5. ATACAND [Concomitant]
  6. ALTOPREV (LOVASTATIN) [Concomitant]
  7. LEVOTHYROXINE SODIUM [Concomitant]
  8. PLAVIX [Concomitant]
  9. ASPIRIN [Concomitant]
  10. NEBIVOLOL HCL [Concomitant]

REACTIONS (4)
  - ANXIETY [None]
  - CONDITION AGGRAVATED [None]
  - CORONARY ARTERY STENOSIS [None]
  - PARAESTHESIA [None]
